FAERS Safety Report 7620322-0 (Version None)
Quarter: 2011Q3

REPORT INFORMATION
  Report Type: 
  Country: None (occurrence: None)
  Receive Date: 20110719
  Receipt Date: 20090729
  Transmission Date: 20111222
  Serious: Yes (Death, Hospitalization, Other)
  Sender: FDA-Public Use
  Company Number: US-AMGEN-US357965

PATIENT
  Age: 37 Year
  Sex: Female

DRUGS (1)
  1. NPLATE [Suspect]
     Indication: IDIOPATHIC THROMBOCYTOPENIC PURPURA
     Dosage: 5 A?G/KG, UNK
     Dates: start: 20090102, end: 20090129

REACTIONS (4)
  - ANTIPHOSPHOLIPID SYNDROME [None]
  - DEATH [None]
  - HOSPITALISATION [None]
  - RENAL FAILURE CHRONIC [None]
